FAERS Safety Report 8848047 (Version 1)
Quarter: 2012Q4

REPORT INFORMATION
  Report Type: Report from Study
  Country: CA (occurrence: CA)
  Receive Date: 20121018
  Receipt Date: 20121018
  Transmission Date: 20130627
  Serious: Yes (Hospitalization)
  Sender: FDA-Public Use
  Company Number: CA-ROCHE-1146549

PATIENT
  Sex: Female
  Weight: 56.75 kg

DRUGS (3)
  1. TOCILIZUMAB [Suspect]
     Indication: RHEUMATOID ARTHRITIS
     Route: 042
     Dates: start: 20120926
  2. TYLENOL [Concomitant]
  3. CODEINE [Concomitant]

REACTIONS (2)
  - Fall [Unknown]
  - Pelvic fracture [Not Recovered/Not Resolved]
